FAERS Safety Report 9767761 (Version 1)
Quarter: 2013Q3

REPORT INFORMATION
  Report Type: Spontaneous
  Country: US (occurrence: None)
  Receive Date: 20130901
  Receipt Date: 20130901
  Transmission Date: 20140515
  Serious: Yes (Death)
  Sender: FDA-Public Use
  Company Number: 117677

PATIENT
  Age: 54 Year
  Sex: Male

DRUGS (2)
  1. DAUNORUBICIN HCL INJ. 20MG/4ML - BEDFORD LABS, INC. [Suspect]
     Indication: ACUTE MYELOID LEUKAEMIA
     Dates: start: 20110401
  2. ETOPOSIDE [Suspect]
     Indication: ACUTE MYELOID LEUKAEMIA
     Dates: start: 20110401

REACTIONS (2)
  - Pneumonia [None]
  - Sepsis [None]
